FAERS Safety Report 6595181-8 (Version None)
Quarter: 2010Q1

REPORT INFORMATION
  Report Type: 
  Country: None (occurrence: None)
  Receive Date: 20100205
  Receipt Date: 20100126
  Transmission Date: 20100710
  Serious: Yes (Other)
  Sender: FDA-Public Use
  Company Number: 2010SP005576

PATIENT
  Age: 53 Year
  Sex: Male

DRUGS (2)
  1. RIBAVIRIN [Suspect]
     Indication: HEPATITIS C
     Dosage: ; PO
     Route: 048
     Dates: start: 20090701, end: 20091101
  2. PEGASYS [Suspect]
     Indication: HEPATITIS C
     Dates: start: 20090701, end: 20091101

REACTIONS (2)
  - HEPATIC NEOPLASM MALIGNANT [None]
  - VIRAL LOAD INCREASED [None]
